FAERS Safety Report 24879941 (Version 1)
Quarter: 2025Q1

REPORT INFORMATION
  Report Type: Spontaneous
  Country: AT (occurrence: AT)
  Receive Date: 20250123
  Receipt Date: 20250123
  Transmission Date: 20250409
  Serious: Yes (Hospitalization)
  Sender: AMERICAN REGENT
  Company Number: AT-AMERICAN REGENT INC-2025000263

PATIENT
  Age: 19 Year
  Sex: Female
  Weight: 73 kg

DRUGS (1)
  1. FERINJECT [Suspect]
     Active Substance: FERRIC CARBOXYMALTOSE
     Indication: Iron deficiency anaemia
     Route: 042
     Dates: start: 20241211, end: 20241211

REACTIONS (6)
  - Feeling jittery [Recovered/Resolved]
  - Cold sweat [Recovered/Resolved]
  - Tachycardia [Recovered/Resolved]
  - Hypotension [Recovered/Resolved]
  - Dyspnoea [Recovered/Resolved]
  - Maternal exposure during pregnancy [Unknown]

NARRATIVE: CASE EVENT DATE: 20241211
